FAERS Safety Report 5946907-5 (Version None)
Quarter: 2008Q4

REPORT INFORMATION
  Report Type: 
  Country: None (occurrence: None)
  Receive Date: 20081110
  Receipt Date: 20081107
  Transmission Date: 20090506
  Serious: Yes (Other)
  Sender: FDA-Public Use
  Company Number: US-ASTRAZENECA-2008UW24939

PATIENT
  Age: 62 Year
  Sex: Female
  Weight: 71.7 kg

DRUGS (3)
  1. ARIMIDEX [Suspect]
     Indication: BREAST CANCER
     Route: 048
     Dates: start: 20030101, end: 20080801
  2. EVISTA [Concomitant]
  3. BONIVA [Concomitant]

REACTIONS (9)
  - ARTHRALGIA [None]
  - ARTHROPATHY [None]
  - CANDIDIASIS [None]
  - CARPAL TUNNEL SYNDROME [None]
  - HOT FLUSH [None]
  - LYMPHOEDEMA [None]
  - NEUROPATHY PERIPHERAL [None]
  - PAIN IN EXTREMITY [None]
  - PARAESTHESIA [None]
